FAERS Safety Report 21840232 (Version 1)
Quarter: 2023Q1

REPORT INFORMATION
  Report Type: Spontaneous
  Country: US (occurrence: US)
  Receive Date: 20230110
  Receipt Date: 20230110
  Transmission Date: 20230418
  Serious: No
  Sender: FDA-Public Use
  Company Number: US-TARO PHARMACEUTICALS USA INC.-2022TAR01158

PATIENT

DRUGS (1)
  1. CLOBETASOL PROPIONATE [Suspect]
     Active Substance: CLOBETASOL PROPIONATE
     Indication: Pruritus
     Dosage: UNK, BID, IT^S HARD TO TELL HOW MUCH IS GOING ON
     Route: 061
     Dates: start: 20220919

REACTIONS (1)
  - Skin burning sensation [Not Recovered/Not Resolved]

NARRATIVE: CASE EVENT DATE: 20220917
